FAERS Safety Report 25571333 (Version 1)
Quarter: 2025Q3

REPORT INFORMATION
  Report Type: Spontaneous
  Country: US (occurrence: US)
  Receive Date: 20250717
  Receipt Date: 20250717
  Transmission Date: 20251021
  Serious: Yes (Hospitalization)
  Sender: MYLAN
  Company Number: US-MYLANLABS-2025M1057253

PATIENT
  Age: 24 Year
  Sex: Female

DRUGS (16)
  1. RIFAMPIN [Suspect]
     Active Substance: RIFAMPIN
     Indication: Pruritus
     Dosage: 150 MILLIGRAM, BID
  2. RIFAMPIN [Suspect]
     Active Substance: RIFAMPIN
     Dosage: 150 MILLIGRAM, BID
     Route: 065
  3. RIFAMPIN [Suspect]
     Active Substance: RIFAMPIN
     Dosage: 150 MILLIGRAM, BID
     Route: 065
  4. RIFAMPIN [Suspect]
     Active Substance: RIFAMPIN
     Dosage: 150 MILLIGRAM, BID
  5. URSODIOL [Suspect]
     Active Substance: URSODIOL
     Indication: Cholestasis of pregnancy
     Dosage: 300 MILLIGRAM, Q8H
  6. URSODIOL [Suspect]
     Active Substance: URSODIOL
     Dosage: 300 MILLIGRAM, Q8H
     Route: 065
  7. URSODIOL [Suspect]
     Active Substance: URSODIOL
     Dosage: 300 MILLIGRAM, Q8H
     Route: 065
  8. URSODIOL [Suspect]
     Active Substance: URSODIOL
     Dosage: 300 MILLIGRAM, Q8H
  9. HYDROXYZINE [Suspect]
     Active Substance: HYDROXYZINE HYDROCHLORIDE
     Indication: Pruritus
  10. HYDROXYZINE [Suspect]
     Active Substance: HYDROXYZINE HYDROCHLORIDE
     Route: 065
  11. HYDROXYZINE [Suspect]
     Active Substance: HYDROXYZINE HYDROCHLORIDE
     Route: 065
  12. HYDROXYZINE [Suspect]
     Active Substance: HYDROXYZINE HYDROCHLORIDE
  13. VITAMIN K [Suspect]
     Active Substance: PHYTONADIONE
     Indication: Coagulopathy
  14. VITAMIN K [Suspect]
     Active Substance: PHYTONADIONE
     Route: 065
  15. VITAMIN K [Suspect]
     Active Substance: PHYTONADIONE
     Route: 065
  16. VITAMIN K [Suspect]
     Active Substance: PHYTONADIONE

REACTIONS (4)
  - Maternal exposure during pregnancy [Recovered/Resolved]
  - Normal newborn [Recovered/Resolved]
  - Treatment noncompliance [Unknown]
  - Off label use [Unknown]
